FAERS Safety Report 6431790-4 (Version None)
Quarter: 2009Q4

REPORT INFORMATION
  Report Type: 
  Country: None (occurrence: None)
  Receive Date: 20091104
  Receipt Date: 20091028
  Transmission Date: 20100525
  Serious: Yes (Hospitalization)
  Sender: FDA-Public Use
  Company Number: 2009SP033594

PATIENT
  Age: 68 Year
  Sex: Female
  Weight: 67 kg

DRUGS (9)
  1. TEMODAL [Suspect]
     Indication: LYMPHOMA
     Dosage: ; PO
     Route: 048
     Dates: start: 20091008, end: 20091012
  2. METHOTREXATE [Suspect]
     Indication: LYMPHOMA
     Dosage: ; IV
     Route: 042
     Dates: start: 20091008, end: 20091008
  3. ART [Concomitant]
  4. DEPAMIDE [Concomitant]
  5. DEROXAT [Concomitant]
  6. LEXOMIL [Concomitant]
  7. PARIET [Concomitant]
  8. VASTAREL [Concomitant]
  9. DAFALGAN [Concomitant]

REACTIONS (3)
  - BLOOD CULTURE POSITIVE [None]
  - LYMPHOPENIA [None]
  - SERRATIA SEPSIS [None]
